FAERS Safety Report 17071116 (Version 3)
Quarter: 2020Q1

REPORT INFORMATION
  Report Type: Spontaneous
  Country: US (occurrence: US)
  Receive Date: 20191125
  Receipt Date: 20200103
  Transmission Date: 20200409
  Serious: No
  Sender: FDA-Public Use
  Company Number: US-PFIZER INC-2015145143

PATIENT
  Age: 62 Year
  Sex: Male
  Weight: 97.98 kg

DRUGS (2)
  1. VIAGRA [Suspect]
     Active Substance: SILDENAFIL CITRATE
     Indication: ERECTILE DYSFUNCTION
     Dosage: UNK, AS NEEDED (USE 1/2 TO 1 TABLET AS NEEDED BEFORE SEXUAL ACTIVITY)
  2. VIAGRA [Suspect]
     Active Substance: SILDENAFIL CITRATE
     Dosage: 100 MG, AS NEEDED

REACTIONS (2)
  - Blood pressure increased [Recovered/Resolved]
  - Weight increased [Recovered/Resolved]
